FAERS Safety Report 6422493-0 (Version None)
Quarter: 2009Q4

REPORT INFORMATION
  Report Type: 
  Country: None (occurrence: None)
  Receive Date: 20091030
  Receipt Date: 20091026
  Transmission Date: 20100525
  Serious: Yes (Death, Hospitalization)
  Sender: FDA-Public Use
  Company Number: BR-ABBOTT-09P-020-0596864-00

PATIENT
  Sex: Female
  Weight: 64 kg

DRUGS (4)
  1. HUMIRA [Suspect]
     Indication: RHEUMATOID ARTHRITIS
     Route: 058
     Dates: start: 20060101
  2. UNKNOWN [Concomitant]
     Indication: RHEUMATOID ARTHRITIS
  3. UNKNOWN [Concomitant]
     Indication: HYPERTENSION
  4. UNKNOWN OPHTHMALIC DROPS [Concomitant]
     Indication: DRUG USE FOR UNKNOWN INDICATION
     Dosage: SPORADIC USE
     Route: 047

REACTIONS (9)
  - ANAEMIA [None]
  - BLOOD CHOLESTEROL INCREASED [None]
  - HAEMATOMA [None]
  - HEPATITIS [None]
  - LIVER DISORDER [None]
  - NAUSEA [None]
  - PYREXIA [None]
  - RETINAL DISORDER [None]
  - VOMITING [None]
